FAERS Safety Report 23573061 (Version 2)
Quarter: 2024Q2

REPORT INFORMATION
  Report Type: Spontaneous
  Country: CA (occurrence: CA)
  Receive Date: 20240227
  Receipt Date: 20240403
  Transmission Date: 20240716
  Serious: Yes (Hospitalization)
  Sender: FDA-Public Use
  Company Number: CA-BoehringerIngelheim-2024-BI-011107

PATIENT
  Age: 74 Year
  Sex: Male
  Weight: 119 kg

DRUGS (2)
  1. JARDIANCE [Suspect]
     Active Substance: EMPAGLIFLOZIN
     Indication: Ischaemic cardiomyopathy
     Dates: start: 20220609, end: 202207
  2. LASIX [Concomitant]
     Active Substance: FUROSEMIDE
     Indication: Product used for unknown indication

REACTIONS (5)
  - Dizziness postural [Recovering/Resolving]
  - Confusional state [Recovered/Resolved]
  - Blood creatinine increased [Recovering/Resolving]
  - Hypotension [Unknown]
  - Dehydration [Unknown]

NARRATIVE: CASE EVENT DATE: 20220601
